FAERS Safety Report 19722030 (Version 1)
Quarter: 2021Q3

REPORT INFORMATION
  Report Type: Report from Study
  Country: US (occurrence: US)
  Receive Date: 20210819
  Receipt Date: 20210819
  Transmission Date: 20211014
  Serious: Yes (Hospitalization)
  Sender: FDA-Public Use
  Company Number: US-TAKEDA-2021TUS050374

PATIENT
  Sex: Female
  Weight: 12 kg

DRUGS (4)
  1. TEDUGLUTIDE [Suspect]
     Active Substance: TEDUGLUTIDE
     Indication: GASTROSCHISIS
     Dosage: 0.62 MILLIGRAM, QD
     Route: 058
  2. TEDUGLUTIDE [Suspect]
     Active Substance: TEDUGLUTIDE
     Indication: GASTROSCHISIS
     Dosage: 0.62 MILLIGRAM, QD
     Route: 058
  3. TEDUGLUTIDE [Suspect]
     Active Substance: TEDUGLUTIDE
     Indication: GASTROSCHISIS
     Dosage: 0.62 MILLIGRAM, QD
     Route: 058
  4. TEDUGLUTIDE [Suspect]
     Active Substance: TEDUGLUTIDE
     Indication: GASTROSCHISIS
     Dosage: 0.62 MILLIGRAM, QD
     Route: 058

REACTIONS (2)
  - Off label use [Unknown]
  - Hospitalisation [Unknown]
